FAERS Safety Report 5753027-1 (Version None)
Quarter: 2008Q2

REPORT INFORMATION
  Report Type: 
  Country: None (occurrence: None)
  Receive Date: 20080527
  Receipt Date: 20080515
  Transmission Date: 20081010
  Serious: Yes (Other)
  Sender: FDA-Public Use
  Company Number: GXKR2008GB04486

PATIENT
  Age: 34 Year
  Sex: Female

DRUGS (1)
  1. PROPRANOLOL [Suspect]
     Dosage: 40 MG, OD, ORAL
     Route: 048
     Dates: start: 20050101

REACTIONS (3)
  - ABORTION SPONTANEOUS [None]
  - DRUG EXPOSURE DURING PREGNANCY [None]
  - GASTROENTERITIS [None]
